FAERS Safety Report 24448081 (Version 1)
Quarter: 2024Q4

REPORT INFORMATION
  Report Type: Spontaneous
  Country: CN (occurrence: CN)
  Receive Date: 20241016
  Receipt Date: 20241016
  Transmission Date: 20250114
  Serious: Yes (Hospitalization)
  Sender: NOVARTIS
  Company Number: CN-002147023-NVSC2024CN202353

PATIENT
  Age: 67 Year
  Sex: Male
  Weight: 75 kg

DRUGS (1)
  1. TEGRETOL [Suspect]
     Active Substance: CARBAMAZEPINE
     Indication: Pain
     Dosage: 200.000 MG, TID
     Route: 048
     Dates: start: 20240808, end: 20240810

REACTIONS (5)
  - Dermatitis herpetiformis [Recovering/Resolving]
  - Erythema [Unknown]
  - Pruritus [Unknown]
  - Erythema multiforme [Unknown]
  - Rash [Recovering/Resolving]

NARRATIVE: CASE EVENT DATE: 20240812
